FAERS Safety Report 7537196-9 (Version None)
Quarter: 2011Q2

REPORT INFORMATION
  Report Type: 
  Country: None (occurrence: None)
  Receive Date: 20110609
  Receipt Date: 20110525
  Transmission Date: 20111010
  Serious: No
  Sender: FDA-Public Use
  Company Number: US-B.I. PHARMACEUTICALS,INC./RIDGEFIELD-2011-BP-13962BP

PATIENT
  Sex: Male

DRUGS (12)
  1. LISINOPRIL [Concomitant]
     Indication: HYPERTENSION
  2. FLOMAX [Concomitant]
     Indication: BENIGN PROSTATIC HYPERPLASIA
     Route: 048
  3. ATENOLOL [Concomitant]
     Indication: HYPERTENSION
  4. FINASTERIDE [Concomitant]
     Indication: BENIGN PROSTATIC HYPERPLASIA
  5. FORMOTEROL FUMARATE [Concomitant]
     Indication: CHRONIC OBSTRUCTIVE PULMONARY DISEASE
  6. SYNTHROID [Concomitant]
  7. ASMANEX TWISTHALER [Concomitant]
     Indication: HYPERSENSITIVITY
  8. ASPIRIN [Concomitant]
     Dosage: 81 MG
     Route: 048
  9. ALBUTEROL SULFATE AUTOHALER [Concomitant]
     Indication: CHRONIC OBSTRUCTIVE PULMONARY DISEASE
  10. SPIRIVA [Suspect]
     Indication: CHRONIC OBSTRUCTIVE PULMONARY DISEASE
  11. PLAVIX [Concomitant]
  12. TRAMADOL HCL [Concomitant]
     Route: 048

REACTIONS (1)
  - DYSGEUSIA [None]
